FAERS Safety Report 15405661 (Version 1)
Quarter: 2018Q3

REPORT INFORMATION
  Report Type: Spontaneous
  Country: US (occurrence: US)
  Receive Date: 20180920
  Receipt Date: 20180920
  Transmission Date: 20181010
  Serious: Yes (Death, Hospitalization, Other)
  Sender: FDA-Public Use
  Company Number: US-ZYDUS-026928

PATIENT
  Age: 52 Year
  Sex: Female

DRUGS (1)
  1. AMLODIPINE [Suspect]
     Active Substance: AMLODIPINE BESYLATE
     Indication: PRODUCT USED FOR UNKNOWN INDICATION
     Route: 065

REACTIONS (7)
  - Metabolic acidosis [Unknown]
  - Bradycardia [Unknown]
  - Respiratory depression [Unknown]
  - Death [Fatal]
  - Depressed level of consciousness [Unknown]
  - Toxicity to various agents [Unknown]
  - Hypotension [Unknown]
